FAERS Safety Report 9040187 (Version 1)
Quarter: 2013Q1

REPORT INFORMATION
  Report Type: Report from Study
  Country: US (occurrence: US)
  Receive Date: 20130129
  Receipt Date: 20130129
  Transmission Date: 20140127
  Serious: No
  Sender: FDA-Public Use
  Company Number: US-ABBOTT-12P-163-0899721-00

PATIENT
  Age: 62 None
  Sex: Female
  Weight: 99.88 kg

DRUGS (5)
  1. HUMIRA 40 MG/0.8 ML PEN [Suspect]
     Indication: RHEUMATOID ARTHRITIS
     Dates: start: 201012
  2. PREDNISONE [Suspect]
     Indication: PARANASAL SINUS HYPERSECRETION
  3. UNKNOWN MEDICATION [Concomitant]
     Indication: INSOMNIA
  4. METHOTREXATE [Concomitant]
     Indication: RHEUMATOID ARTHRITIS
  5. CELEBREX [Concomitant]
     Indication: RHEUMATOID ARTHRITIS

REACTIONS (5)
  - Paranasal sinus hypersecretion [Not Recovered/Not Resolved]
  - Aphonia [Recovered/Resolved]
  - Cough [Not Recovered/Not Resolved]
  - No therapeutic response [Not Recovered/Not Resolved]
  - Insomnia [Not Recovered/Not Resolved]
